FAERS Safety Report 4536759-2 (Version None)
Quarter: 2004Q4

REPORT INFORMATION
  Report Type: 
  Country: None (occurrence: None)
  Receive Date: 20041223
  Receipt Date: 20021108
  Transmission Date: 20050328
  Serious: Yes (Life-Threatening, Hospitalization, Disabling)
  Sender: FDA-Public Use
  Company Number: US-ROCHE-325286

PATIENT
  Sex: Female
  Weight: 81.6 kg

DRUGS (1)
  1. ACCUTANE [Suspect]
     Indication: ACNE
     Route: 048
     Dates: start: 19880615, end: 19880615

REACTIONS (9)
  - CHRONIC MYELOID LEUKAEMIA [None]
  - ENDOCRINE DISORDER [None]
  - HEPATIC CIRRHOSIS [None]
  - HYPERVITAMINOSIS A [None]
  - ILL-DEFINED DISORDER [None]
  - LIPOHYPERTROPHY [None]
  - METABOLIC DISORDER [None]
  - MYELOFIBROSIS [None]
  - VIRAL LOAD [None]
